FAERS Safety Report 8815090 (Version 4)
Quarter: 2013Q2

REPORT INFORMATION
  Report Type: Spontaneous
  Country: DE (occurrence: DE)
  Receive Date: 20120928
  Receipt Date: 20130430
  Transmission Date: 20140414
  Serious: Yes (Death, Life-Threatening, Hospitalization)
  Sender: FDA-Public Use
  Company Number: DE-GENZYME-POMP-1002439

PATIENT
  Age: 53 Year
  Sex: Female
  Weight: 62 kg

DRUGS (9)
  1. MYOZYME [Suspect]
     Indication: GLYCOGEN STORAGE DISEASE TYPE II
     Dosage: 20 MG/KG, Q2W
     Route: 042
     Dates: start: 20070119, end: 201212
  2. THYROXIN [Concomitant]
     Indication: PRODUCT USED FOR UNKNOWN INDICATION
     Dosage: 1000 MG, ^1-0-0^
     Route: 065
  3. KEPPRA [Concomitant]
     Indication: PRODUCT USED FOR UNKNOWN INDICATION
     Dosage: 1000 MG, ^1-1-1^
     Route: 065
     Dates: start: 201203
  4. MOTILIUM [Concomitant]
     Indication: PRODUCT USED FOR UNKNOWN INDICATION
     Dosage: 3 X 1 ML
     Route: 065
     Dates: start: 201209
  5. PANTAZOL [Concomitant]
     Indication: PRODUCT USED FOR UNKNOWN INDICATION
     Dosage: 40 MG, ^1-0-0^
     Route: 065
     Dates: start: 201209
  6. FORTECORTIN [Concomitant]
     Indication: PRODUCT USED FOR UNKNOWN INDICATION
     Dosage: 91.5 MG X2
     Route: 065
     Dates: start: 201209
  7. TRILEPTAL [Concomitant]
     Indication: PRODUCT USED FOR UNKNOWN INDICATION
     Dosage: 300 MG, ^1-0-1^
     Route: 065
     Dates: start: 201205
  8. TAVOR [Concomitant]
     Indication: PRODUCT USED FOR UNKNOWN INDICATION
     Dosage: 1 MG, ^0-0-1^
     Route: 065
     Dates: start: 201209
  9. NOVOLOG [Concomitant]
     Indication: PRODUCT USED FOR UNKNOWN INDICATION
     Dosage: 500 MG X4

REACTIONS (1)
  - Glioblastoma multiforme [Fatal]
